FAERS Safety Report 21691121 (Version 1)
Quarter: 2022Q4

REPORT INFORMATION
  Report Type: Report from Study
  Country: US (occurrence: US)
  Receive Date: 20221207
  Receipt Date: 20221207
  Transmission Date: 20230113
  Serious: Yes (Other)
  Sender: FDA-Public Use
  Company Number: US-ABBVIE-4225052

PATIENT
  Sex: Female

DRUGS (1)
  1. HUMIRA [Suspect]
     Active Substance: ADALIMUMAB
     Indication: Hidradenitis
     Route: 058

REACTIONS (5)
  - Systemic lupus erythematosus [Unknown]
  - Hernia [Not Recovered/Not Resolved]
  - Furuncle [Not Recovered/Not Resolved]
  - Type 2 diabetes mellitus [Unknown]
  - Pain [Unknown]
